FAERS Safety Report 4492795-6 (Version None)
Quarter: 2004Q4

REPORT INFORMATION
  Report Type: 
  Country: None (occurrence: None)
  Receive Date: 20041102
  Receipt Date: 20041102
  Transmission Date: 20050328
  Serious: No
  Sender: FDA-Public Use
  Company Number: None

PATIENT
  Sex: Male
  Weight: 99.3377 kg

DRUGS (2)
  1. TRANXENE [Suspect]
     Indication: ANXIETY
     Dosage: ONE PO BID
     Route: 048
     Dates: start: 20000530
  2. TRANXENE SD [Suspect]
     Dosage: ONE PO BID
     Route: 048
     Dates: start: 20000530

REACTIONS (2)
  - DRUG INEFFECTIVE [None]
  - PHARMACEUTICAL PRODUCT COMPLAINT [None]
